FAERS Safety Report 10071107 (Version 3)
Quarter: 2014Q3

REPORT INFORMATION
  Report Type: Spontaneous
  Country: US (occurrence: US)
  Receive Date: 20140410
  Receipt Date: 20140808
  Transmission Date: 20150326
  Serious: No
  Sender: FDA-Public Use
  Company Number: US-GILEAD-2014-0099183

PATIENT
  Age: 39 Year
  Sex: Female

DRUGS (3)
  1. REMODULIN [Suspect]
     Active Substance: TREPROSTINIL
     Indication: PRODUCT USED FOR UNKNOWN INDICATION
     Route: 065
  2. REVATIO [Concomitant]
     Active Substance: SILDENAFIL CITRATE
  3. LETAIRIS [Suspect]
     Active Substance: AMBRISENTAN
     Indication: PRODUCT USED FOR UNKNOWN INDICATION
     Dosage: 10 MG, QD
     Route: 065
     Dates: start: 20100916

REACTIONS (8)
  - Rash papular [Unknown]
  - Injection site discharge [Not Recovered/Not Resolved]
  - Infusion site vesicles [Unknown]
  - Infusion site erythema [Unknown]
  - Dermatitis [Unknown]
  - Infusion site reaction [Unknown]
  - Infusion site rash [Unknown]
  - Inflammation [Unknown]

NARRATIVE: CASE EVENT DATE: 201404
